FAERS Safety Report 5003879-8 (Version None)
Quarter: 2006Q2

REPORT INFORMATION
  Report Type: 
  Country: None (occurrence: None)
  Receive Date: 20060515
  Receipt Date: 20060503
  Transmission Date: 20061013
  Serious: Yes (Other)
  Sender: FDA-Public Use
  Company Number: 200610387BFR

PATIENT
  Sex: Male
  Weight: 2.96 kg

DRUGS (7)
  1. ADALAT [Suspect]
     Indication: THREATENED LABOUR
     Dosage: 40 MG, TID, TRANSPLACENTAL
     Route: 064
     Dates: start: 20060403, end: 20060413
  2. AUGMENTIN '125' [Concomitant]
  3. SALBUTAMOL [Concomitant]
  4. NEXIUM [Concomitant]
  5. SERESTA [Concomitant]
  6. SUFENTANIL CITRATE [Concomitant]
  7. MORPHINE [Concomitant]

REACTIONS (5)
  - APGAR SCORE LOW [None]
  - BRADYCARDIA NEONATAL [None]
  - CAESAREAN SECTION [None]
  - DRUG EXPOSURE DURING PREGNANCY [None]
  - NEONATAL RESPIRATORY DISTRESS SYNDROME [None]
